FAERS Safety Report 4380351-X (Version None)
Quarter: 2004Q2

REPORT INFORMATION
  Report Type: 
  Country: None (occurrence: None)
  Receive Date: 20040616
  Receipt Date: 20040616
  Transmission Date: 20050107
  Serious: Yes (Life-Threatening, Hospitalization)
  Sender: FDA-Public Use
  Company Number: None

PATIENT
  Age: 16 Year
  Sex: Male
  Weight: 142.6563 kg

DRUGS (5)
  1. WELLBUTRIN XL [Suspect]
     Indication: ATTENTION DEFICIT/HYPERACTIVITY DISORDER
     Dosage: PO DAILY
     Route: 048
     Dates: start: 20040401, end: 20040422
  2. WELLBUTRIN XL [Suspect]
     Indication: DEPRESSION
     Dosage: PO DAILY
     Route: 048
     Dates: start: 20040401, end: 20040422
  3. WELLBUTRIN XL [Suspect]
     Indication: ATTENTION DEFICIT/HYPERACTIVITY DISORDER
     Dosage: PO DAILY
     Route: 048
     Dates: start: 20040428
  4. WELLBUTRIN XL [Suspect]
     Indication: DEPRESSION
     Dosage: PO DAILY
     Route: 048
     Dates: start: 20040428
  5. SEROQUEL [Concomitant]

REACTIONS (4)
  - GRAND MAL CONVULSION [None]
  - RASH [None]
  - RESPIRATORY ARREST [None]
  - TREATMENT NONCOMPLIANCE [None]
